FAERS Safety Report 25958214 (Version 2)
Quarter: 2025Q4

REPORT INFORMATION
  Report Type: Spontaneous
  Country: US (occurrence: US)
  Receive Date: 20251024
  Receipt Date: 20251202
  Transmission Date: 20260117
  Serious: No
  Sender: PFIZER
  Company Number: US-PFIZER INC-202500197644

PATIENT
  Age: 44 Year
  Sex: Male

DRUGS (1)
  1. EUCRISA [Suspect]
     Active Substance: CRISABOROLE
     Indication: Eczema eyelids
     Dosage: APPLY BID TO EYELIDS

REACTIONS (4)
  - Dysphonia [Unknown]
  - Off label use [Unknown]
  - Off label use [Unknown]
  - Product administration error [Unknown]
